FAERS Safety Report 22601812 (Version 1)
Quarter: 2023Q2

REPORT INFORMATION
  Report Type: Report from Study
  Country: US (occurrence: US)
  Receive Date: 20230614
  Receipt Date: 20230614
  Transmission Date: 20230721
  Serious: No
  Sender: FDA-Public Use
  Company Number: US-BIOVITRUM-2023-US-011438

PATIENT
  Age: 55 Year
  Sex: Female

DRUGS (2)
  1. KINERET [Suspect]
     Active Substance: ANAKINRA
     Indication: Juvenile idiopathic arthritis
     Dosage: ONCE DAILY
     Route: 058
  2. KINERET [Suspect]
     Active Substance: ANAKINRA
     Dosage: ONCE DAILY
     Route: 058
     Dates: start: 20230516

REACTIONS (3)
  - Injection site pain [Unknown]
  - Urticaria [Unknown]
  - Intentional product misuse [Not Recovered/Not Resolved]

NARRATIVE: CASE EVENT DATE: 20230516
